FAERS Safety Report 23937764 (Version 1)
Quarter: 2024Q2

REPORT INFORMATION
  Report Type: Spontaneous
  Country: US (occurrence: None)
  Receive Date: 20240603
  Receipt Date: 20240603
  Transmission Date: 20240716
  Serious: Yes (Life-Threatening, Hospitalization)
  Sender: FDA-Public Use
  Company Number: None

PATIENT
  Age: 74 Year
  Sex: Female
  Weight: 58.2 kg

DRUGS (1)
  1. DALBAVANCIN [Suspect]
     Active Substance: DALBAVANCIN
     Indication: Infection
     Dosage: OTHER FREQUENCY : ONCE;?
     Route: 042
     Dates: start: 20240531, end: 20240531

REACTIONS (4)
  - Dyspnoea [None]
  - Anaphylactic reaction [None]
  - Pulseless electrical activity [None]
  - Cardiac arrest [None]

NARRATIVE: CASE EVENT DATE: 20240531
